FAERS Safety Report 16452273 (Version 1)
Quarter: 2019Q2

REPORT INFORMATION
  Report Type: Spontaneous
  Country: US (occurrence: US)
  Receive Date: 20190619
  Receipt Date: 20190619
  Transmission Date: 20190711
  Serious: No
  Sender: FDA-Public Use
  Company Number: US-ROCHE-2267506

PATIENT

DRUGS (8)
  1. ORENCIA [Concomitant]
     Active Substance: ABATACEPT
  2. ACTEMRA [Suspect]
     Active Substance: TOCILIZUMAB
     Indication: JUVENILE IDIOPATHIC ARTHRITIS
     Route: 042
     Dates: start: 2016
  3. HUMIRA [Concomitant]
     Active Substance: ADALIMUMAB
  4. XELJANZ [Concomitant]
     Active Substance: TOFACITINIB CITRATE
     Route: 048
  5. ARAVA [Concomitant]
     Active Substance: LEFLUNOMIDE
  6. METHOTREXATE. [Concomitant]
     Active Substance: METHOTREXATE
     Dosage: DISCONTINUED DUE TO NAUSEA
     Route: 048
  7. SIMPONI [Concomitant]
     Active Substance: GOLIMUMAB
  8. ENBREL [Concomitant]
     Active Substance: ETANERCEPT

REACTIONS (1)
  - Infusion related reaction [Unknown]
